FAERS Safety Report 19389633 (Version 1)
Quarter: 2021Q2

REPORT INFORMATION
  Report Type: Spontaneous
  Country: US (occurrence: US)
  Receive Date: 20210607
  Receipt Date: 20210607
  Transmission Date: 20210717
  Serious: Yes (Disabling)
  Sender: FDA-Public Use
  Company Number: None

PATIENT
  Age: 75 Year
  Sex: Female
  Weight: 71.1 kg

DRUGS (6)
  1. PROLIA [Suspect]
     Active Substance: DENOSUMAB
     Indication: OSTEOPETROSIS
     Dates: start: 20201028, end: 20201029
  2. CRANBERRY. [Concomitant]
     Active Substance: CRANBERRY
  3. CLONASEPAM [Concomitant]
  4. CALCIUM [Concomitant]
     Active Substance: CALCIUM
  5. D MANNOSE [Concomitant]
  6. VITAMIN C [Concomitant]
     Active Substance: ASCORBIC ACID

REACTIONS (9)
  - Cystitis [None]
  - Blood cholesterol increased [None]
  - Pain [None]
  - Tooth fracture [None]
  - Mobility decreased [None]
  - Muscle spasms [None]
  - Pain in jaw [None]
  - Myalgia [None]
  - Condition aggravated [None]

NARRATIVE: CASE EVENT DATE: 20201028
